FAERS Safety Report 9308699 (Version 1)
Quarter: 2013Q2

REPORT INFORMATION
  Report Type: Spontaneous
  Country: HR (occurrence: HR)
  Receive Date: 20130524
  Receipt Date: 20130524
  Transmission Date: 20140414
  Serious: Yes (Hospitalization, Other)
  Sender: FDA-Public Use
  Company Number: PHHY2013HR051009

PATIENT
  Age: 66 Year
  Sex: Female

DRUGS (5)
  1. SANVAL [Suspect]
     Indication: INSOMNIA
     Dosage: 5 MG, QD
     Route: 048
     Dates: start: 2012
  2. PRAXITEN [Suspect]
     Indication: NERVOUSNESS
     Dosage: 15 MG, QD
     Route: 048
  3. CYMBALTA [Suspect]
     Indication: DEPRESSION
     Dosage: 30 MG, BID
     Route: 048
     Dates: start: 201205, end: 201209
  4. LACIPIL [Suspect]
     Indication: HYPERTENSION
     Dosage: 4 MG, QD
     Route: 048
  5. ORMIDOL [Concomitant]
     Indication: HYPERTENSION
     Dosage: 25 MG, QD
     Route: 048

REACTIONS (1)
  - Thrombocytopenia [Unknown]
